FAERS Safety Report 12735730 (Version 3)
Quarter: 2016Q3

REPORT INFORMATION
  Report Type: Spontaneous
  Country: IT (occurrence: IT)
  Receive Date: 20160913
  Receipt Date: 20160929
  Transmission Date: 20161109
  Serious: Yes (Other)
  Sender: FDA-Public Use
  Company Number: IT-TEVA-690912ACC

PATIENT
  Age: 53 Year
  Sex: Female

DRUGS (8)
  1. METHOTREXATE. [Suspect]
     Active Substance: METHOTREXATE
     Indication: PSORIATIC ARTHROPATHY
     Route: 030
  2. METHOTREXATE. [Suspect]
     Active Substance: METHOTREXATE
     Route: 065
  3. FLUOCORTOLONE [Concomitant]
     Active Substance: FLUOCORTOLONE
     Dosage: 20 MILLIGRAM DAILY;
  4. FLUOCORTOLONE [Concomitant]
     Active Substance: FLUOCORTOLONE
     Indication: PSORIATIC ARTHROPATHY
     Dosage: 10 MILLIGRAM DAILY;
  5. INFLIXIMAB [Concomitant]
     Active Substance: INFLIXIMAB
     Indication: PSORIATIC ARTHROPATHY
     Route: 042
  6. CICLOSPORINA [Concomitant]
     Active Substance: CYCLOSPORINE
  7. CICLOSPORINA [Concomitant]
     Active Substance: CYCLOSPORINE
     Indication: PSORIATIC ARTHROPATHY
     Dosage: 300 MILLIGRAM DAILY;
  8. DIFLUCORTOLONE [Concomitant]
     Active Substance: DIFLUCORTOLONE
     Dosage: 3 MG /KG OF BODY WEIGHT

REACTIONS (3)
  - Transaminases increased [Unknown]
  - Hepatic fibrosis [Unknown]
  - Hepatic steatosis [Unknown]
